FAERS Safety Report 10729148 (Version 1)
Quarter: 2015Q1

REPORT INFORMATION
  Report Type: Spontaneous
  Country: US (occurrence: None)
  Receive Date: 20150120
  Receipt Date: 20150120
  Transmission Date: 20150721
  Serious: Yes (Other)
  Sender: FDA-Public Use
  Company Number: None

PATIENT
  Age: 58 Year
  Sex: Female

DRUGS (1)
  1. TAMIFLU [Suspect]
     Active Substance: OSELTAMIVIR PHOSPHATE
     Indication: INFLUENZA
     Dosage: TWICE DAILY, TAKEN BY MOUTH
     Route: 048

REACTIONS (4)
  - Psychotic disorder [None]
  - Drug ineffective [None]
  - Imprisonment [None]
  - Physical assault [None]

NARRATIVE: CASE EVENT DATE: 20150103
